FAERS Safety Report 6998425-3 (Version None)
Quarter: 2010Q3

REPORT INFORMATION
  Report Type: 
  Country: None (occurrence: None)
  Receive Date: 20100902
  Receipt Date: 20100108
  Transmission Date: 20110219
  Serious: Yes (Disabling, Other)
  Sender: FDA-Public Use
  Company Number: 220446USA

PATIENT
  Sex: Female

DRUGS (1)
  1. METOCLOPRAMIDE [Suspect]
     Indication: GASTROOESOPHAGEAL REFLUX DISEASE
     Dosage: INITIALLY BID, THEN INCREASED TO TID X 2 YEARS (10 MG, 2 IN 1 D)
     Dates: start: 20010801, end: 20080201

REACTIONS (3)
  - DYSKINESIA [None]
  - PARKINSONISM [None]
  - TREMOR [None]
